FAERS Safety Report 9139204 (Version 1)
Quarter: 2013Q1

REPORT INFORMATION
  Report Type: Spontaneous
  Country: SG (occurrence: SG)
  Receive Date: 20130305
  Receipt Date: 20130305
  Transmission Date: 20140127
  Serious: Yes (Hospitalization, Other)
  Sender: FDA-Public Use
  Company Number: SG-PFIZER INC-2013072355

PATIENT
  Age: 65 Year
  Sex: Male
  Weight: 55 kg

DRUGS (14)
  1. PHENYTOIN [Suspect]
     Indication: EPILEPSY
     Dosage: 300 MG, DAILY
     Route: 048
     Dates: start: 20120913, end: 20120928
  2. ASPIRINE [Concomitant]
     Dosage: 100 MG, DAILY
     Route: 048
     Dates: start: 20030905
  3. ATORVASTATIN [Concomitant]
     Dosage: 20 MG, DAILY
     Route: 048
     Dates: start: 20120531
  4. CALCIUM CARBONATE [Concomitant]
     Dosage: UNK
     Dates: start: 20120915
  5. VITAMIN D [Concomitant]
     Dosage: DAILY
     Route: 048
     Dates: start: 20120915
  6. CARVEDILOL [Concomitant]
     Dosage: 6.25 MG, 2X/DAY DAILY
     Route: 048
     Dates: start: 20030905
  7. CEFTRIAXONE [Concomitant]
     Dosage: 2 G, DAILY
     Route: 042
     Dates: start: 20120924, end: 20120926
  8. DIPYRIDAMOLE [Concomitant]
     Dosage: 150 MG, 3X/DAY
     Dates: start: 20120531
  9. FAMOTIDINE [Concomitant]
     Dosage: 40 MG, DAILY
     Dates: start: 20120915
  10. GELAFUNDIN ^PISA^ [Concomitant]
     Dosage: 1000 ML, 1 TIME STAT
     Route: 042
     Dates: start: 20120926, end: 20120926
  11. ISOSORBIDE DINITRATE [Concomitant]
     Dosage: 10 MG, 3X/DAY DAILY
     Route: 048
     Dates: start: 20120905, end: 20120926
  12. MEROPENEM [Concomitant]
     Dosage: 1 G, 3X/DAY
     Route: 042
     Dates: start: 20120928, end: 20120930
  13. PIPERACILLIN/TAZOBACTAM [Concomitant]
     Dosage: 4.5 G, 3X/DAY
     Route: 042
     Dates: start: 20120926, end: 20120928
  14. VANCOMYCIN [Concomitant]
     Dosage: 1 G, DAILY
     Route: 042
     Dates: start: 20120928, end: 20120930

REACTIONS (5)
  - Drug reaction with eosinophilia and systemic symptoms [Recovered/Resolved]
  - Rash generalised [Recovered/Resolved]
  - Swelling face [Recovered/Resolved]
  - Flushing [Recovered/Resolved]
  - Drug hypersensitivity [Recovered/Resolved]
